FAERS Safety Report 24691212 (Version 1)
Quarter: 2024Q4

REPORT INFORMATION
  Report Type: Spontaneous
  Country: IT (occurrence: IT)
  Receive Date: 20241203
  Receipt Date: 20241203
  Transmission Date: 20250114
  Serious: No
  Sender: TOLMAR
  Company Number: IT-TOLMAR, INC.-24IT054391

PATIENT

DRUGS (1)
  1. ELIGARD [Suspect]
     Active Substance: LEUPROLIDE ACETATE
     Indication: Product used for unknown indication
     Dosage: 7.5 MILLIGRAM

REACTIONS (2)
  - Intercepted product administration error [Unknown]
  - Syringe issue [Unknown]
